FAERS Safety Report 7959846-5 (Version None)
Quarter: 2011Q4

REPORT INFORMATION
  Report Type: 
  Country: None (occurrence: None)
  Receive Date: 20111206
  Receipt Date: 20111202
  Transmission Date: 20120403
  Serious: Yes (Other)
  Sender: FDA-Public Use
  Company Number: US-PFIZER INC-2011294693

PATIENT
  Sex: Female

DRUGS (3)
  1. LYRICA [Suspect]
     Dosage: 75 MG, DAILY
     Dates: start: 20111001, end: 20111101
  2. SAVELLA [Suspect]
     Dosage: UNK
  3. LYRICA [Suspect]
     Dosage: 150 MG, DAILY
     Dates: start: 20111101

REACTIONS (5)
  - HYPOACUSIS [None]
  - DRUG INEFFECTIVE [None]
  - DYSPHAGIA [None]
  - THROAT TIGHTNESS [None]
  - OESOPHAGEAL STENOSIS [None]
